FAERS Safety Report 6013896-7 (Version None)
Quarter: 2008Q4

REPORT INFORMATION
  Report Type: 
  Country: None (occurrence: None)
  Receive Date: 20081219
  Receipt Date: 20081006
  Transmission Date: 20090506
  Serious: No
  Sender: FDA-Public Use
  Company Number: A0750630A

PATIENT
  Age: 41 Year
  Sex: Female

DRUGS (2)
  1. ADVAIR DISKUS 250/50 [Suspect]
     Indication: ASTHMA
     Route: 055
     Dates: start: 20080301
  2. ALBUTEROL [Concomitant]

REACTIONS (3)
  - DRY MOUTH [None]
  - DRY SKIN [None]
  - OROPHARYNGEAL PAIN [None]
